FAERS Safety Report 7133938-5 (Version None)
Quarter: 2010Q4

REPORT INFORMATION
  Report Type: 
  Country: None (occurrence: None)
  Receive Date: 20101203
  Receipt Date: 20100611
  Transmission Date: 20110411
  Serious: Yes (Hospitalization, Other)
  Sender: FDA-Public Use
  Company Number: US-BAYER-201010768NA

PATIENT

DRUGS (6)
  1. YAZ [Suspect]
     Dates: start: 20090501, end: 20091001
  2. YASMIN [Suspect]
     Route: 048
     Dates: start: 20080401, end: 20080701
  3. OCELLA [Suspect]
     Dates: start: 20080701, end: 20090501
  4. LEVOTHYROXINE [Concomitant]
     Dates: start: 19990101
  5. EXCEDRIN (MIGRAINE) [Concomitant]
     Indication: MIGRAINE
     Dates: start: 19900101
  6. VICODIN [Concomitant]

REACTIONS (4)
  - CHOLECYSTITIS [None]
  - CHOLELITHIASIS [None]
  - GALLBLADDER DISORDER [None]
  - MENTAL DISORDER [None]
